FAERS Safety Report 22101149 (Version 1)
Quarter: 2023Q1

REPORT INFORMATION
  Report Type: Report from Study
  Country: US (occurrence: US)
  Receive Date: 20230316
  Receipt Date: 20230316
  Transmission Date: 20230418
  Serious: Yes (Other)
  Sender: FDA-Public Use
  Company Number: US-JNJFOC-20230321534

PATIENT
  Sex: Female

DRUGS (6)
  1. SIMPONI [Suspect]
     Active Substance: GOLIMUMAB
     Indication: Rheumatoid arthritis
     Route: 058
  2. SYSTANE FREE [Concomitant]
  3. IBUPROFEN [Concomitant]
     Active Substance: IBUPROFEN
  4. FOLIC ACID [Concomitant]
     Active Substance: FOLIC ACID
  5. ASPIRIN [Concomitant]
     Active Substance: ASPIRIN
  6. METHOTREXATE [Concomitant]
     Active Substance: METHOTREXATE

REACTIONS (1)
  - Pneumonia [Unknown]
